FAERS Safety Report 7266238-3 (Version None)
Quarter: 2011Q1

REPORT INFORMATION
  Report Type: 
  Country: None (occurrence: None)
  Receive Date: 20110131
  Receipt Date: 20101208
  Transmission Date: 20110831
  Serious: No
  Sender: FDA-Public Use
  Company Number: US-ABBOTT-10P-163-0690321-00

PATIENT
  Sex: Male
  Weight: 84.898 kg

DRUGS (2)
  1. LUPRON DEPOT [Suspect]
     Indication: PROSTATE CANCER
     Dates: start: 20100601
  2. BICALUTAMIDE [Concomitant]
     Indication: PROSTATE CANCER
     Dates: start: 20100301, end: 20100901

REACTIONS (2)
  - WEIGHT INCREASED [None]
  - WAIST CIRCUMFERENCE INCREASED [None]
